FAERS Safety Report 14328533 (Version 3)
Quarter: 2018Q1

REPORT INFORMATION
  Report Type: Spontaneous
  Country: JP (occurrence: JP)
  Receive Date: 20171227
  Receipt Date: 20180116
  Transmission Date: 20180509
  Serious: Yes (Other)
  Sender: FDA-Public Use
  Company Number: JP-PFIZER INC-2017544641

PATIENT
  Age: 73 Year
  Sex: Male
  Weight: 57.5 kg

DRUGS (1)
  1. METHOTREXATE SODIUM. [Suspect]
     Active Substance: METHOTREXATE SODIUM
     Indication: RHEUMATOID ARTHRITIS
     Dosage: 7.5 MG, WEEKLY
     Route: 048
     Dates: start: 198805

REACTIONS (3)
  - Peritonitis [Unknown]
  - Non-Hodgkin^s lymphoma [Unknown]
  - Ileal perforation [Unknown]
